FAERS Safety Report 9167670 (Version 2)
Quarter: 2013Q1

REPORT INFORMATION
  Report Type: Spontaneous
  Country: JP (occurrence: None)
  Receive Date: 20130307
  Receipt Date: 20130326
  Transmission Date: 20140127
  Serious: No
  Sender: FDA-Public Use
  Company Number: JP-011054

PATIENT
  Age: 85 Year
  Sex: Male

DRUGS (6)
  1. GONAX [Suspect]
     Indication: PROSTATE CANCER
     Dosage: (80 MG 1X/MONTH SUBCUTANEOUS)
     Route: 058
     Dates: start: 20130124, end: 20130124
  2. DENUSOMAB [Concomitant]
  3. ASPARA-CA [Concomitant]
  4. LAC-B [Concomitant]
  5. ESOMEPRAZOLE [Concomitant]
  6. CELECOX [Concomitant]

REACTIONS (2)
  - Glycosylated haemoglobin increased [None]
  - Glucose tolerance impaired [None]
